FAERS Safety Report 7326553-1 (Version None)
Quarter: 2011Q1

REPORT INFORMATION
  Report Type: 
  Country: None (occurrence: None)
  Receive Date: 20110302
  Receipt Date: 20110224
  Transmission Date: 20110831
  Serious: Yes (Other)
  Sender: FDA-Public Use
  Company Number: JP-MERCK-1102USA02081

PATIENT
  Age: 80 Year
  Sex: Female

DRUGS (7)
  1. ACTONEL [Concomitant]
     Indication: OSTEOPOROSIS
     Route: 065
  2. MYSLEE [Concomitant]
     Route: 065
  3. PEPCID [Concomitant]
     Route: 048
  4. MUCODYNE [Concomitant]
     Route: 048
  5. COZAAR [Suspect]
     Indication: HYPERTENSION
     Route: 048
     Dates: end: 20110219
  6. ALFAROL [Concomitant]
     Indication: OSTEOPOROSIS
     Route: 065
  7. GASMOTIN [Concomitant]
     Route: 065

REACTIONS (1)
  - PEMPHIGOID [None]
